FAERS Safety Report 11130449 (Version 1)
Quarter: 2015Q2

REPORT INFORMATION
  Report Type: Spontaneous
  Country: CH (occurrence: CH)
  Receive Date: 20150522
  Receipt Date: 20150522
  Transmission Date: 20150821
  Serious: Yes (Other)
  Sender: FDA-Public Use
  Company Number: CH-009507513-1505CHE007940

PATIENT
  Age: 23 Year
  Sex: Female

DRUGS (3)
  1. REMERON [Suspect]
     Active Substance: MIRTAZAPINE
     Dosage: 15 MG, BID
     Route: 048
     Dates: start: 2014
  2. RIVOTRIL [Suspect]
     Active Substance: CLONAZEPAM
     Dosage: 7 MG, QD
     Dates: start: 2014
  3. METHADONE HYDROCHLORIDE. [Suspect]
     Active Substance: METHADONE HYDROCHLORIDE
     Indication: DRUG WITHDRAWAL SYNDROME
     Dosage: 90 MG, BID
     Dates: start: 2014

REACTIONS (3)
  - Caesarean section [Unknown]
  - Foetal monitoring abnormal [Unknown]
  - Exposure during pregnancy [Recovered/Resolved]

NARRATIVE: CASE EVENT DATE: 201403
